FAERS Safety Report 6037612-8 (Version None)
Quarter: 2009Q1

REPORT INFORMATION
  Report Type: 
  Country: None (occurrence: None)
  Receive Date: 20090114
  Receipt Date: 20090112
  Transmission Date: 20090719
  Serious: No
  Sender: FDA-Public Use
  Company Number: US-B.I. PHARMACEUTICALS,INC./RIDGEFIELD-2009-BP-00150BP

PATIENT
  Sex: Female

DRUGS (6)
  1. SPIRIVA [Suspect]
     Indication: CHRONIC OBSTRUCTIVE PULMONARY DISEASE
     Dosage: 18MCG
     Route: 055
     Dates: start: 20081220
  2. ALBUTEROL [Concomitant]
     Indication: CHRONIC OBSTRUCTIVE PULMONARY DISEASE
  3. BENADRYL [Concomitant]
     Indication: HYPERSENSITIVITY
  4. PROPRANOLOL [Concomitant]
     Indication: TACHYCARDIA
  5. OMEPRAZOLE [Concomitant]
     Indication: DYSPEPSIA
  6. TUMS [Concomitant]
     Indication: DYSPEPSIA

REACTIONS (4)
  - COUGH [None]
  - DRUG INEFFECTIVE [None]
  - GAIT DISTURBANCE [None]
  - PRODUCTIVE COUGH [None]
